FAERS Safety Report 4833308-6 (Version None)
Quarter: 2005Q4

REPORT INFORMATION
  Report Type: 
  Country: None (occurrence: None)
  Receive Date: 20051121
  Receipt Date: 20051024
  Transmission Date: 20060501
  Serious: Yes (Death, Hospitalization)
  Sender: FDA-Public Use
  Company Number: FR-AMGEN-UK155483

PATIENT
  Sex: Female

DRUGS (2)
  1. DARBEPOETIN ALFA [Suspect]
     Indication: DIALYSIS
     Route: 042
     Dates: start: 20050524, end: 20051011
  2. SINTROM [Suspect]
     Dates: start: 20051018

REACTIONS (2)
  - PERIPHERAL ISCHAEMIA [None]
  - THROMBOSIS [None]
